FAERS Safety Report 23403179 (Version 2)
Quarter: 2024Q1

REPORT INFORMATION
  Report Type: Spontaneous
  Country: CA (occurrence: CA)
  Receive Date: 20240116
  Receipt Date: 20240223
  Transmission Date: 20240410
  Serious: Yes (Other)
  Sender: FDA-Public Use
  Company Number: None

PATIENT
  Sex: Male

DRUGS (10)
  1. LENALIDOMIDE [Suspect]
     Active Substance: LENALIDOMIDE
     Indication: Follicular lymphoma
  2. RITUXIMAB [Suspect]
     Active Substance: RITUXIMAB
     Indication: Follicular lymphoma
  3. RITUXIMAB [Suspect]
     Active Substance: RITUXIMAB
  4. RITUXIMAB [Suspect]
     Active Substance: RITUXIMAB
  5. BENDAMUSTINE HYDROCHLORIDE [Suspect]
     Active Substance: BENDAMUSTINE HYDROCHLORIDE
     Indication: Follicular lymphoma
  6. CYCLOPHOSPHAMIDE [Suspect]
     Active Substance: CYCLOPHOSPHAMIDE
     Indication: Follicular lymphoma
  7. DOXORUBICIN [Suspect]
     Active Substance: DOXORUBICIN
     Indication: Follicular lymphoma
  8. PREDNISONE [Suspect]
     Active Substance: PREDNISONE
     Indication: Follicular lymphoma
  9. TAZEMETOSTAT [Suspect]
     Active Substance: TAZEMETOSTAT
     Indication: Follicular lymphoma
  10. VINCRISTINE [Suspect]
     Active Substance: VINCRISTINE
     Indication: Follicular lymphoma

REACTIONS (5)
  - Disease progression [Unknown]
  - Blood lactate dehydrogenase increased [Unknown]
  - Lymphadenopathy [Unknown]
  - Malignant pleural effusion [Unknown]
  - Product use in unapproved indication [Unknown]
